FAERS Safety Report 4994735-X (Version None)
Quarter: 2006Q2

REPORT INFORMATION
  Report Type: 
  Country: None (occurrence: None)
  Receive Date: 20060505
  Receipt Date: 20060427
  Transmission Date: 20061013
  Serious: Yes (Hospitalization)
  Sender: FDA-Public Use
  Company Number: SG-ABBOTT-06P-141-0332062-00

PATIENT
  Age: 53 Year
  Sex: Male

DRUGS (2)
  1. EPILIM TABLETS [Suspect]
     Indication: DRUG USE FOR UNKNOWN INDICATION
  2. CARBAMAZEPINE [Suspect]
     Indication: DRUG USE FOR UNKNOWN INDICATION

REACTIONS (4)
  - MUCOSAL INFLAMMATION [None]
  - PRURITUS [None]
  - PYREXIA [None]
  - RASH GENERALISED [None]
